FAERS Safety Report 5828625-7 (Version None)
Quarter: 2008Q3

REPORT INFORMATION
  Report Type: 
  Country: None (occurrence: None)
  Receive Date: 20080731
  Receipt Date: 20080725
  Transmission Date: 20090109
  Serious: Yes (Death)
  Sender: FDA-Public Use
  Company Number: A0740386A

PATIENT
  Age: 70 Year
  Sex: Male
  Weight: 66 kg

DRUGS (4)
  1. SERETIDE [Suspect]
     Route: 055
     Dates: start: 20080618, end: 20080621
  2. SPIRIVA [Concomitant]
     Dates: start: 20080618, end: 20080621
  3. SYMBICORT [Concomitant]
  4. AMINOPHYLLINE [Concomitant]
     Dates: start: 20030724, end: 20080704

REACTIONS (3)
  - ARRHYTHMIA [None]
  - DRUG INEFFECTIVE [None]
  - LUNG NEOPLASM MALIGNANT [None]
